FAERS Safety Report 12144543 (Version 1)
Quarter: 2016Q1

REPORT INFORMATION
  Report Type: Spontaneous
  Country: PY (occurrence: PY)
  Receive Date: 20160304
  Receipt Date: 20160304
  Transmission Date: 20160526
  Serious: Yes (Death, Hospitalization, Other)
  Sender: FDA-Public Use
  Company Number: PY-ELI_LILLY_AND_COMPANY-PY201603000256

PATIENT
  Sex: Female

DRUGS (2)
  1. INSULIN HUMAN [Suspect]
     Active Substance: INSULIN HUMAN
     Indication: PRODUCT USED FOR UNKNOWN INDICATION
     Dosage: 4 IU, EACH EVENING
     Route: 064
     Dates: end: 20150310
  2. INSULIN HUMAN [Suspect]
     Active Substance: INSULIN HUMAN
     Indication: PRODUCT USED FOR UNKNOWN INDICATION
     Dosage: 4 IU, EACH EVENING
     Route: 064
     Dates: end: 20150310

REACTIONS (4)
  - Infarction [Fatal]
  - Premature baby [Unknown]
  - Immature respiratory system [Unknown]
  - Foetal exposure during pregnancy [Recovered/Resolved]
